FAERS Safety Report 5075447-3 (Version None)
Quarter: 2006Q3

REPORT INFORMATION
  Report Type: 
  Country: None (occurrence: None)
  Receive Date: 20060809
  Receipt Date: 20060802
  Transmission Date: 20061208
  Serious: Yes (Other)
  Sender: FDA-Public Use
  Company Number: KR-JNJFOC-20060800595

PATIENT
  Sex: Female
  Weight: 56 kg

DRUGS (3)
  1. REMINYL PR [Suspect]
     Route: 048
  2. REMINYL PR [Suspect]
     Route: 048
  3. REMINYL PR [Suspect]
     Indication: DEMENTIA ALZHEIMER'S TYPE
     Route: 048

REACTIONS (3)
  - JOINT HYPEREXTENSION [None]
  - NUCHAL RIGIDITY [None]
  - OCULOGYRATION [None]
